FAERS Safety Report 5728183-1 (Version None)
Quarter: 2008Q2

REPORT INFORMATION
  Report Type: 
  Country: None (occurrence: None)
  Receive Date: 20080501
  Receipt Date: 20080418
  Transmission Date: 20081010
  Serious: Yes (Other)
  Sender: FDA-Public Use
  Company Number: 2008010221

PATIENT
  Age: 40 Year
  Sex: Female

DRUGS (3)
  1. BENADRYL [Suspect]
     Dosage: ABOUT 15 PILLS, A DAY, ORAL
     Route: 048
     Dates: start: 20030101
  2. PAXIL [Concomitant]
  3. LEVOTHYROXINE SODIUM [Concomitant]

REACTIONS (3)
  - DRUG DEPENDENCE [None]
  - DRUG SCREEN POSITIVE [None]
  - INCORRECT DOSE ADMINISTERED [None]
